FAERS Safety Report 5142939-8 (Version None)
Quarter: 2006Q4

REPORT INFORMATION
  Report Type: 
  Country: None (occurrence: None)
  Receive Date: 20061030
  Receipt Date: 20061013
  Transmission Date: 20070319
  Serious: Yes (Hospitalization)
  Sender: FDA-Public Use
  Company Number: PAR_0884_2006

PATIENT
  Age: 81 Year
  Sex: Female

DRUGS (10)
  1. ISOPTIN [Suspect]
     Indication: HYPERTENSION
     Dosage: 240 MG QDAY PO
     Route: 048
  2. ISOPTIN [Suspect]
     Dosage: 240 MG QDAY PO
     Route: 048
  3. CANDESARTAN CILEXETIL [Suspect]
     Indication: HYPERTENSION
     Dosage: 8 MG QDAY PO
     Route: 048
  4. POTASSIUM CHLORIDE [Concomitant]
  5. ENTACAPONE [Concomitant]
  6. SIMVASTATIN [Concomitant]
  7. BUMETANIDE [Concomitant]
  8. MADOPAR [Concomitant]
  9. CITALOPRAME [Concomitant]
  10. LANSOPRAZOLE [Concomitant]

REACTIONS (2)
  - BRADYCARDIA [None]
  - RENAL FAILURE [None]
